FAERS Safety Report 6793776-X (Version None)
Quarter: 2010Q2

REPORT INFORMATION
  Report Type: 
  Country: None (occurrence: None)
  Receive Date: 20100624
  Receipt Date: 20090630
  Transmission Date: 20101027
  Serious: No
  Sender: FDA-Public Use
  Company Number: US-PFIZER INC-2008152400

PATIENT
  Sex: Female

DRUGS (2)
  1. GEODON [Suspect]
  2. CONCERTA [Interacting]

REACTIONS (2)
  - DRUG INTERACTION [None]
  - HEADACHE [None]
